FAERS Safety Report 9316423 (Version 1)
Quarter: 2013Q2

REPORT INFORMATION
  Report Type: Spontaneous
  Country: US (occurrence: None)
  Receive Date: 20130522
  Receipt Date: 20130522
  Transmission Date: 20140414
  Serious: Yes (Other)
  Sender: FDA-Public Use
  Company Number: COL_13634_2013

PATIENT
  Sex: Female

DRUGS (7)
  1. COLGATE TOTAL ADVANCED CLEAN [Suspect]
     Indication: DENTAL CARIES
  2. COLGATE TOTAL ADVANCED CLEAN [Suspect]
     Indication: DENTAL PLAQUE
  3. COLGATE TOTAL TOOTHPASTE [Suspect]
     Indication: GINGIVITIS
     Dosage: (FILLS THE HEAD OF HER TOOTHBRUSH/BID/ORAL)?(UNKNOWN UNTIL NOT CONTINUING)???
     Route: 048
     Dates: end: 201305
  4. COLGATE TOTAL TOOTHPASTE [Suspect]
     Indication: DENTAL CARIES
     Dosage: (FILLS THE HEAD OF HER TOOTHBRUSH/BID/ORAL)?(UNKNOWN UNTIL NOT CONTINUING)???
     Route: 048
     Dates: end: 201305
  5. THYROXIN [Concomitant]
  6. METFORMIN [Concomitant]
  7. ANTIHYPERTENSIVES [Concomitant]

REACTIONS (2)
  - Neuropathy peripheral [None]
  - Dysstasia [None]
